FAERS Safety Report 9144479 (Version 2)
Quarter: 2013Q2

REPORT INFORMATION
  Report Type: Spontaneous
  Country: US (occurrence: US)
  Receive Date: 20130306
  Receipt Date: 20130426
  Transmission Date: 20140414
  Serious: Yes (Other)
  Sender: FDA-Public Use
  Company Number: US-PFIZER INC-2013077843

PATIENT
  Age: 59 Year
  Sex: Female
  Weight: 61 kg

DRUGS (6)
  1. LYRICA [Suspect]
     Indication: PROCEDURAL PAIN
     Dosage: 50 MG, 3X/DAY
     Route: 048
     Dates: start: 20130218, end: 20130226
  2. LYRICA [Suspect]
     Indication: WOUND
  3. CELEBREX [Suspect]
     Indication: PROCEDURAL PAIN
     Dosage: 200 MG, 2X/DAY
     Route: 048
     Dates: start: 20130218, end: 201302
  4. CELEBREX [Suspect]
     Indication: WOUND
  5. HYDROCODONE/ACETAMINOPHEN [Concomitant]
     Indication: PAIN
     Dosage: UNK
  6. NORCO [Concomitant]
     Indication: PAIN
     Dosage: HYDROCODONE BITARTRATE (5MG) - PARACETAMOL (325) MG 1-2 Q 4-6 HRS
     Dates: start: 20130208

REACTIONS (8)
  - Urinary tract infection [Unknown]
  - Blood urine present [Unknown]
  - Malaise [Recovering/Resolving]
  - Local swelling [Recovering/Resolving]
  - Nausea [Recovering/Resolving]
  - Headache [Recovering/Resolving]
  - Asthenia [Recovering/Resolving]
  - Pyrexia [Recovering/Resolving]
